FAERS Safety Report 4614169-7 (Version None)
Quarter: 2005Q1

REPORT INFORMATION
  Report Type: 
  Country: None (occurrence: None)
  Receive Date: 20050315
  Receipt Date: 20041229
  Transmission Date: 20050727
  Serious: Yes (Hospitalization)
  Sender: FDA-Public Use
  Company Number: WAES 0412BEL00054

PATIENT
  Age: 9 Year
  Sex: Male

DRUGS (11)
  1. INDOCIN I.V. [Suspect]
     Indication: PATENT DUCTUS ARTERIOSUS REPAIR
     Dosage: 0.2 MG/KG/DAILY; IV
     Route: 042
  2. DECADRON [Suspect]
     Indication: PROPHYLAXIS
     Dosage: SEE IMAGE
     Route: 042
  3. DECADRON [Suspect]
     Indication: PROPHYLAXIS
     Dosage: SEE IMAGE
     Route: 042
  4. DECADRON [Suspect]
     Indication: PROPHYLAXIS
     Dosage: SEE IMAGE
     Route: 042
  5. DECADRON [Suspect]
     Indication: PROPHYLAXIS
     Dosage: SEE IMAGE
     Route: 042
  6. DECADRON [Suspect]
     Indication: PROPHYLAXIS
     Dosage: SEE IMAGE
     Route: 042
  7. AMPICILLIN [Concomitant]
  8. BERACTANT [Concomitant]
  9. CEFOTAXIME SODIUM [Concomitant]
  10. INSULIN [Concomitant]
  11. RANITIDINE [Concomitant]

REACTIONS (7)
  - CONNECTIVE TISSUE DISORDER [None]
  - HYPERGLYCAEMIA [None]
  - INTESTINAL ISCHAEMIA [None]
  - INTESTINAL PERFORATION [None]
  - NECROSIS [None]
  - NEONATAL DISORDER [None]
  - PERITONITIS [None]
